FAERS Safety Report 7658807-3 (Version None)
Quarter: 2011Q3

REPORT INFORMATION
  Report Type: 
  Country: None (occurrence: None)
  Receive Date: 20110805
  Receipt Date: 20110726
  Transmission Date: 20111222
  Serious: Yes (Hospitalization, Other)
  Sender: FDA-Public Use
  Company Number: JP-JNJFOC-20101100547

PATIENT
  Sex: Female
  Weight: 40 kg

DRUGS (8)
  1. REMICADE [Suspect]
     Route: 042
     Dates: start: 20090201
  2. REMICADE [Suspect]
     Route: 042
     Dates: start: 20070401
  3. IMURAN [Concomitant]
     Route: 048
  4. PREDNISOLONE [Concomitant]
     Indication: CROHN'S DISEASE
     Dates: end: 20091030
  5. REMICADE [Suspect]
     Indication: CROHN'S DISEASE
     Dosage: 20 INFUSIONS ON UNSPECIFIED DATES
     Route: 042
  6. REMICADE [Suspect]
     Route: 042
     Dates: start: 20050601
  7. FAMOTIDINE [Concomitant]
     Indication: PROPHYLAXIS
     Route: 048
  8. PENTASA [Concomitant]
     Indication: CROHN'S DISEASE
     Route: 048

REACTIONS (2)
  - RECTAL CANCER STAGE II [None]
  - METASTASES TO LUNG [None]
